FAERS Safety Report 10259492 (Version 1)
Quarter: 2014Q2

REPORT INFORMATION
  Report Type: Spontaneous
  Country: FR (occurrence: FR)
  Receive Date: 20140625
  Receipt Date: 20140625
  Transmission Date: 20141212
  Serious: Yes (Hospitalization)
  Sender: FDA-Public Use
  Company Number: FR-PFIZER INC-2014169564

PATIENT
  Age: 87 Year
  Sex: Female

DRUGS (14)
  1. TRIFLUCAN [Suspect]
     Indication: FUNGAL INFECTION
     Dosage: 100 MG, DAILY
     Route: 048
     Dates: start: 201307, end: 20130731
  2. BACTRIM FORTE [Suspect]
     Indication: FUNGAL INFECTION
     Dosage: 2 DF, DAILY
     Route: 048
     Dates: start: 201307, end: 20130731
  3. OXYBUTYNIN [Concomitant]
     Dosage: 5 MG, DAILY
     Dates: end: 20130726
  4. TOPALGIC [Concomitant]
     Indication: PAIN
     Dosage: 50 MG, 4X/DAY
     Dates: end: 20130726
  5. DOLIPRANE [Concomitant]
     Indication: PAIN
     Dosage: 1 G, 4X/DAY
  6. MODOPAR [Concomitant]
  7. LEVOTHYROX [Concomitant]
  8. DIFFU K [Concomitant]
     Indication: HYPOKALAEMIA
     Dosage: 600 MG, 3X/DAY
  9. FORLAX [Concomitant]
  10. TARDYFERON [Concomitant]
  11. CALCIDOSE [Concomitant]
  12. UVEDOSE [Concomitant]
     Dosage: UNK
  13. BICARBONATE [Concomitant]
  14. MORPHINE [Concomitant]
     Dosage: UNK
     Dates: start: 201307

REACTIONS (2)
  - Hyponatraemia [Recovered/Resolved]
  - Nausea [Recovered/Resolved]
